FAERS Safety Report 9449720 (Version 2)
Quarter: 2014Q1

REPORT INFORMATION
  Report Type: Spontaneous
  Country: IT (occurrence: IT)
  Receive Date: 20130809
  Receipt Date: 20140122
  Transmission Date: 20141002
  Serious: Yes (Other)
  Sender: FDA-Public Use
  Company Number: IT-ACCORD-018894

PATIENT
  Age: 66 Year
  Sex: Male
  Weight: 60 kg

DRUGS (4)
  1. GEMCITABINE/GEMCITABINE HYDROCHLORIDE [Suspect]
     Indication: LUNG ADENOCARCINOMA
     Dosage: IT WAS THE FIRST ADMINISTRATION
  2. METOCLOPRAMIDE [Concomitant]
     Route: 042
  3. TROPISETRON [Concomitant]
     Route: 042
  4. DEXAMETHASONE [Concomitant]
     Route: 042

REACTIONS (2)
  - Dyspnoea [Unknown]
  - Formication [Unknown]
